FAERS Safety Report 4495092-8 (Version None)
Quarter: 2004Q4

REPORT INFORMATION
  Report Type: 
  Country: None (occurrence: None)
  Receive Date: 20041105
  Receipt Date: 20041105
  Transmission Date: 20050328
  Serious: Yes (Life-Threatening, Hospitalization)
  Sender: FDA-Public Use
  Company Number: None

PATIENT
  Age: 33 Year
  Sex: Female
  Weight: 53.6 kg

DRUGS (4)
  1. LEVAQUIN [Suspect]
     Indication: BRONCHITIS
     Dosage: 500 MG    QD    ORAL
     Route: 048
     Dates: start: 20040526, end: 20040530
  2. ULTRACET [Concomitant]
  3. NEXIUM [Concomitant]
  4. IOPHEN [Concomitant]

REACTIONS (3)
  - DYSPHAGIA [None]
  - INSOMNIA [None]
  - STEVENS-JOHNSON SYNDROME [None]
